FAERS Safety Report 14564668 (Version 1)
Quarter: 2018Q1

REPORT INFORMATION
  Report Type: Spontaneous
  Country: DE (occurrence: DE)
  Receive Date: 20180222
  Receipt Date: 20180222
  Transmission Date: 20180509
  Serious: Yes (Death, Life-Threatening, Hospitalization, Other)
  Sender: FDA-Public Use
  Company Number: DE-JNJFOC-20180220371

PATIENT

DRUGS (5)
  1. DICLOFENAC [Interacting]
     Active Substance: DICLOFENAC
     Indication: PRODUCT USED FOR UNKNOWN INDICATION
     Route: 065
  2. ASA [Interacting]
     Active Substance: ASPIRIN
     Indication: PRODUCT USED FOR UNKNOWN INDICATION
     Route: 065
  3. IBUPROFEN. [Suspect]
     Active Substance: IBUPROFEN
     Route: 065
  4. METHYLPREDNISOLONE. [Interacting]
     Active Substance: METHYLPREDNISOLONE
     Indication: PRODUCT USED FOR UNKNOWN INDICATION
     Route: 065
  5. IBUPROFEN. [Suspect]
     Active Substance: IBUPROFEN
     Indication: PRODUCT USED FOR UNKNOWN INDICATION
     Route: 065

REACTIONS (14)
  - Renal failure [Fatal]
  - Renal impairment [Fatal]
  - Incorrect drug administration duration [Fatal]
  - Treatment noncompliance [Fatal]
  - Contraindicated product administered [Fatal]
  - Gastrointestinal haemorrhage [Fatal]
  - Drug administration error [Fatal]
  - Drug administered to patient of inappropriate age [Fatal]
  - Gastric perforation [Fatal]
  - Drug interaction [Fatal]
  - Product use in unapproved indication [Fatal]
  - Incorrect dose administered [Fatal]
  - Gastric ulcer [Fatal]
  - Gastritis [Fatal]
